FAERS Safety Report 12266588 (Version 1)
Quarter: 2016Q2

REPORT INFORMATION
  Report Type: Spontaneous
  Country: US (occurrence: US)
  Receive Date: 20160414
  Receipt Date: 20160414
  Transmission Date: 20160815
  Serious: Yes (Other)
  Sender: FDA-Public Use
  Company Number: US-BEH-2016061115

PATIENT
  Age: 53 Year
  Sex: Male
  Weight: 99 kg

DRUGS (14)
  1. ZEMAIRA [Suspect]
     Active Substance: .ALPHA.1-PROTEINASE INHIBITOR HUMAN
     Indication: ALPHA-1 ANTI-TRYPSIN DEFICIENCY
     Route: 042
  2. TRAMADOL. [Concomitant]
     Active Substance: TRAMADOL
  3. VITAMIN B COMPLEX [Concomitant]
     Active Substance: CYANOCOBALAMIN\DEXPANTHENOL\NIACINAMIDE\PYRIDOXINE HYDROCHLORIDE\RIBOFLAVIN 5^-PHOSPHATE SODIUM\THIAMINE HYDROCHLORIDE\VITAMIN B COMPLEX
  4. GLUCOSAMINE [Concomitant]
     Active Substance: GLUCOSAMINE
  5. DIPHENHYDRAMINE. [Concomitant]
     Active Substance: DIPHENHYDRAMINE
  6. MULTIVITAMINS [Concomitant]
     Active Substance: VITAMINS
  7. TYLENOL-CODEINE NO 3 [Concomitant]
  8. OTHER MINERAL SUPPLEMENTS [Concomitant]
     Active Substance: MINERALS
  9. DULERA [Concomitant]
     Active Substance: FORMOTEROL FUMARATE DIHYDRATE\MOMETASONE FUROATE
  10. SPIRIVA [Concomitant]
     Active Substance: TIOTROPIUM BROMIDE MONOHYDRATE
  11. SODIUM CHLORIDE. [Concomitant]
     Active Substance: SODIUM CHLORIDE
  12. COQ10 [Concomitant]
     Active Substance: UBIDECARENONE
  13. EPIPEN [Concomitant]
     Active Substance: EPINEPHRINE
  14. DULERA [Concomitant]
     Active Substance: FORMOTEROL FUMARATE DIHYDRATE\MOMETASONE FUROATE

REACTIONS (2)
  - Road traffic accident [Unknown]
  - Tibia fracture [Unknown]

NARRATIVE: CASE EVENT DATE: 20160402
